FAERS Safety Report 13754979 (Version 1)
Quarter: 2017Q3

REPORT INFORMATION
  Report Type: Spontaneous
  Country: JP (occurrence: JP)
  Receive Date: 20170714
  Receipt Date: 20170714
  Transmission Date: 20171127
  Serious: Yes (Hospitalization, Other)
  Sender: FDA-Public Use
  Company Number: JP-009507513-1705JPN000701J

PATIENT
  Age: 30 Year
  Sex: Female
  Weight: 51 kg

DRUGS (6)
  1. OTSUKA NORMAL SALINE [Concomitant]
     Indication: VEHICLE SOLUTION USE
     Dosage: 100 ML, QD
     Route: 041
     Dates: start: 20170503, end: 20170507
  2. SOLULACT [Concomitant]
     Indication: FLUID REPLACEMENT
     Dosage: UNK
     Route: 051
     Dates: end: 20170507
  3. CANCIDAS [Suspect]
     Active Substance: CASPOFUNGIN ACETATE
     Dosage: 70 MG, QD
     Route: 041
     Dates: start: 20170503, end: 20170503
  4. ACYCLOVIR. [Suspect]
     Active Substance: ACYCLOVIR
     Indication: HERPES VIRUS INFECTION
     Dosage: 250 MG, BID
     Route: 051
     Dates: start: 20170505, end: 20170505
  5. CANCIDAS [Suspect]
     Active Substance: CASPOFUNGIN ACETATE
     Dosage: 50 MG, QD
     Route: 041
     Dates: start: 20170504, end: 20170509
  6. ACYCLOVIR. [Suspect]
     Active Substance: ACYCLOVIR
     Dosage: 250 MG, TID
     Route: 051
     Dates: start: 20170506, end: 20170511

REACTIONS (3)
  - Mouth ulceration [Recovered/Resolved]
  - Vascular pain [Recovered/Resolved]
  - Angioedema [Recovered/Resolved]

NARRATIVE: CASE EVENT DATE: 20170505
